FAERS Safety Report 8919663 (Version 1)
Quarter: 2012Q4

REPORT INFORMATION
  Report Type: 
  Country: US (occurrence: US)
  Receive Date: 20121121
  Receipt Date: 20121121
  Transmission Date: 20130627
  Serious: No
  Sender: FDA-Public Use
  Company Number: US-BIOGENIDEC-2012BI053681

PATIENT
  Age: 40 Year
  Sex: Female

DRUGS (2)
  1. TYSABRI [Suspect]
     Indication: MULTIPLE SCLEROSIS
     Route: 042
     Dates: start: 20111018
  2. ANTIBIOTICS [Concomitant]

REACTIONS (3)
  - Staphylococcal infection [Recovered/Resolved]
  - Respiratory tract infection [Recovered/Resolved]
  - Malaise [Recovered/Resolved]
